FAERS Safety Report 7576273 (Version 2)
Quarter: 2020Q3

REPORT INFORMATION
  Report Type: Spontaneous
  Country: NO (occurrence: NO)
  Receive Date: 20100908
  Receipt Date: 20101209
  Transmission Date: 20201104
  Serious: Yes (Death, Other)
  Sender: FDA-Public Use
  Company Number: PHHY2010NO56210

PATIENT
  Age: 69 Year
  Sex: Female

DRUGS (17)
  1. FOSAMAX [Suspect]
     Active Substance: ALENDRONATE SODIUM
     Dosage: UNK
     Route: 048
     Dates: start: 2007
  2. NEURONTIN [Concomitant]
     Active Substance: GABAPENTIN
  3. NITRAZEPAM [Concomitant]
     Active Substance: NITRAZEPAM
  4. FLUNITRAZEPAM [Concomitant]
     Active Substance: FLUNITRAZEPAM
  5. PAROXETINE. [Concomitant]
     Active Substance: PAROXETINE
  6. LYRICA [Concomitant]
     Active Substance: PREGABALIN
  7. PARACET [Concomitant]
  8. MEDROL [Concomitant]
     Active Substance: METHYLPREDNISOLONE
  9. ZOMETA [Suspect]
     Active Substance: ZOLEDRONIC ACID
     Indication: BREAST CANCER METASTATIC
     Dosage: UNK
     Route: 042
     Dates: start: 2004, end: 2007
  10. METOCLOPRAMIDE HYDROCHLORIDE. [Concomitant]
     Active Substance: METOCLOPRAMIDE HYDROCHLORIDE
  11. VESICARE [Concomitant]
     Active Substance: SOLIFENACIN SUCCINATE
  12. PURSENNID [Concomitant]
  13. MORPHINE [Concomitant]
     Active Substance: MORPHINE
  14. IBANDRONIC ACID. [Suspect]
     Active Substance: IBANDRONIC ACID
     Dosage: UNK
     Dates: start: 2007
  15. FENTANYL. [Concomitant]
     Active Substance: FENTANYL
  16. SOMAC [Concomitant]
     Active Substance: PANTOPRAZOLE SODIUM
  17. TRIOBE [Concomitant]

REACTIONS (4)
  - Neoplasm malignant [Fatal]
  - Osteonecrosis of jaw [Not Recovered/Not Resolved]
  - Tooth loss [Unknown]
  - Bone disorder [Unknown]

NARRATIVE: CASE EVENT DATE: 20070101
